FAERS Safety Report 7500804-2 (Version None)
Quarter: 2011Q2

REPORT INFORMATION
  Report Type: 
  Country: None (occurrence: None)
  Receive Date: 20110524
  Receipt Date: 20110512
  Transmission Date: 20111010
  Serious: Yes (Hospitalization)
  Sender: FDA-Public Use
  Company Number: A0778469A

PATIENT
  Age: 53 Year
  Sex: Female
  Weight: 86.8 kg

DRUGS (15)
  1. METOPROLOL [Concomitant]
  2. OMACOR [Concomitant]
  3. AVANDARYL [Suspect]
     Indication: DIABETES MELLITUS
     Route: 065
  4. PLAVIX [Concomitant]
  5. LANTUS [Concomitant]
  6. LEVOTHYROXINE SODIUM [Concomitant]
  7. LIPITOR [Concomitant]
  8. STARLIX [Concomitant]
  9. VYTORIN [Concomitant]
  10. ACTOS [Concomitant]
  11. AVANDAMET [Suspect]
     Indication: DIABETES MELLITUS
     Route: 065
  12. AVANDIA [Suspect]
     Indication: DIABETES MELLITUS
     Dosage: 8MG PER DAY
     Route: 065
     Dates: start: 20020101, end: 20070501
  13. DIOVAN [Concomitant]
  14. LEVOXYL [Concomitant]
  15. PRILOSEC [Concomitant]

REACTIONS (3)
  - MYOCARDIAL ISCHAEMIA [None]
  - MYOCARDIAL INFARCTION [None]
  - CORONARY ARTERY DISEASE [None]
